FAERS Safety Report 4293471-5 (Version None)
Quarter: 2004Q1

REPORT INFORMATION
  Report Type: 
  Country: None (occurrence: None)
  Receive Date: 20040210
  Receipt Date: 20040126
  Transmission Date: 20041129
  Serious: No
  Sender: FDA-Public Use
  Company Number: 03P-167-0211708-00

PATIENT
  Age: 50 Year
  Sex: Male

DRUGS (4)
  1. KALETRA [Suspect]
     Indication: HIV INFECTION
  2. ABACAVIR SULFATE [Suspect]
     Indication: HIV INFECTION
  3. ZIDOVUDINE [Suspect]
     Indication: HIV INFECTION
  4. LAMIVUDINE [Suspect]
     Indication: HIV INFECTION

REACTIONS (6)
  - CELLULITIS [None]
  - FOOT FRACTURE [None]
  - OSTEOARTHRITIS [None]
  - OSTEOPOROSIS [None]
  - OSTEOPOROTIC FRACTURE [None]
  - PAIN [None]
